FAERS Safety Report 9475224 (Version 2)
Quarter: 2013Q3

REPORT INFORMATION
  Report Type: Spontaneous
  Country: US (occurrence: US)
  Receive Date: 20130825
  Receipt Date: 20130825
  Transmission Date: 20140515
  Serious: Yes (Death, Hospitalization, Other)
  Sender: FDA-Public Use
  Company Number: US-SANOFI-AVENTIS-2013SA028684

PATIENT
  Sex: Male

DRUGS (14)
  1. PLAVIX [Suspect]
     Indication: PRODUCT USED FOR UNKNOWN INDICATION
     Dates: start: 199812
  2. ASPIRIN [Suspect]
     Indication: PRODUCT USED FOR UNKNOWN INDICATION
     Route: 065
     Dates: start: 199812
  3. ALBUTEROL [Concomitant]
  4. AMLODIPINE [Concomitant]
     Route: 065
  5. TAMSULOSIN [Concomitant]
     Route: 065
  6. LEVOTHYROXINE [Concomitant]
     Route: 065
  7. METOPROLOL TARTRATE [Concomitant]
     Dosage: HALF
     Route: 065
  8. FAMOTIDINE [Concomitant]
     Route: 065
  9. SIMVASTATIN [Concomitant]
  10. PROTONIX [Concomitant]
  11. PROMETHAZINE [Concomitant]
  12. FERROUS SULFATE [Concomitant]
  13. IMDUR [Concomitant]
  14. NORCO [Concomitant]
     Dosage: 7.5/325 Q 4H

REACTIONS (20)
  - Pneumonia [Unknown]
  - Hypoxia [Unknown]
  - Dyslipidaemia [Unknown]
  - Hypertension [Unknown]
  - Hypothyroidism [Unknown]
  - Cardiac failure congestive [Unknown]
  - Fluid overload [Recovered/Resolved]
  - Dyspnoea [Recovered/Resolved]
  - Renal failure acute [Unknown]
  - Renal impairment [Recovered/Resolved]
  - Anaemia [Unknown]
  - Myocardial infarction [Fatal]
  - Coronary artery disease [Fatal]
  - Gastrointestinal haemorrhage [Unknown]
  - Cerebrovascular accident [Unknown]
  - Type 2 diabetes mellitus [Unknown]
  - Asthenia [Unknown]
  - Adverse event [Unknown]
  - Gait disturbance [Unknown]
  - Gastrooesophageal reflux disease [Unknown]
